FAERS Safety Report 18051149 (Version 2)
Quarter: 2021Q2

REPORT INFORMATION
  Report Type: Spontaneous
  Country: CA (occurrence: CA)
  Receive Date: 20200721
  Receipt Date: 20210628
  Transmission Date: 20210717
  Serious: Yes (Other)
  Sender: FDA-Public Use
  Company Number: CA-TEVA-2020-CA-1802458

PATIENT
  Age: 50 Year
  Sex: Male

DRUGS (9)
  1. CONCERTA [Concomitant]
     Active Substance: METHYLPHENIDATE HYDROCHLORIDE
  2. ZOPICLONE [Concomitant]
     Active Substance: ZOPICLONE
  3. MESALAZINE [Concomitant]
     Active Substance: MESALAMINE
  4. OMEGA 3 [FISH OIL] [Concomitant]
     Active Substance: FISH OIL
  5. PREDNISONE. [Concomitant]
     Active Substance: PREDNISONE
  6. PREGABALIN. [Suspect]
     Active Substance: PREGABALIN
     Indication: PRODUCT USED FOR UNKNOWN INDICATION
     Route: 065
  7. VITAMIN D [COLECALCIFEROL] [Concomitant]
     Active Substance: CHOLECALCIFEROL
  8. PREDNISOLONE. [Concomitant]
     Active Substance: PREDNISOLONE
  9. MERCAPTOPURINE. [Concomitant]
     Active Substance: MERCAPTOPURINE

REACTIONS (2)
  - Hernia [Not Recovered/Not Resolved]
  - Colitis ulcerative [Not Recovered/Not Resolved]
